FAERS Safety Report 15698793 (Version 11)
Quarter: 2019Q1

REPORT INFORMATION
  Report Type: Report from Study
  Country: AR (occurrence: AR)
  Receive Date: 20181207
  Receipt Date: 20190213
  Transmission Date: 20190417
  Serious: Yes (Death, Life-Threatening, Hospitalization, Disabling)
  Sender: FDA-Public Use
  Company Number: AR-ROCHE-2224160

PATIENT
  Age: 31 Year
  Sex: Female
  Weight: 60.7 kg

DRUGS (65)
  1. CALCIUM CARBONATE. [Concomitant]
     Active Substance: CALCIUM CARBONATE
     Route: 048
     Dates: start: 20161121
  2. NPH INSULIN [Concomitant]
     Active Substance: INSULIN BEEF
     Route: 058
     Dates: start: 20180426, end: 20181130
  3. NPH INSULIN [Concomitant]
     Active Substance: INSULIN BEEF
     Route: 058
     Dates: start: 20181130, end: 20181202
  4. HYDROXYCHLOROQUINE [Concomitant]
     Active Substance: HYDROXYCHLOROQUINE
     Route: 050
     Dates: start: 20181130, end: 20190104
  5. VANCOMYCIN [Concomitant]
     Active Substance: VANCOMYCIN
     Route: 050
     Dates: start: 20181215, end: 20181222
  6. COLISTIN [Concomitant]
     Active Substance: COLISTIN
     Route: 042
     Dates: start: 20190101, end: 20190104
  7. REMIFENTANIL [Concomitant]
     Active Substance: REMIFENTANIL
     Route: 042
     Dates: start: 20181213, end: 20190103
  8. SULFAMETHOXAZOLE/TRIMETHOPRIM [Concomitant]
     Active Substance: SULFAMETHOXAZOLE\TRIMETHOPRIM
     Route: 045
     Dates: start: 20181209, end: 20190104
  9. VITAMIN D2 [Concomitant]
     Active Substance: ERGOCALCIFEROL
     Route: 048
     Dates: start: 20161121
  10. OMEPRAZOLE. [Concomitant]
     Active Substance: OMEPRAZOLE
     Route: 048
     Dates: start: 20181201, end: 20181210
  11. ROSUVASTATIN. [Concomitant]
     Active Substance: ROSUVASTATIN
     Indication: LUPUS NEPHRITIS
     Route: 048
     Dates: start: 20180510
  12. DEXAMETHASONE. [Concomitant]
     Active Substance: DEXAMETHASONE
     Route: 042
     Dates: start: 20181217, end: 20190104
  13. ACETAMINOPHEN. [Concomitant]
     Active Substance: ACETAMINOPHEN
     Route: 048
     Dates: start: 20181130, end: 20181130
  14. REMIFENTANIL [Concomitant]
     Active Substance: REMIFENTANIL
     Route: 042
     Dates: start: 20190103, end: 20190104
  15. FUROSEMIDE. [Concomitant]
     Active Substance: FUROSEMIDE
     Route: 042
     Dates: start: 20181208, end: 20181209
  16. MYCOPHENOLATE MOFETIL. [Suspect]
     Active Substance: MYCOPHENOLATE MOFETIL
     Indication: LUPUS NEPHRITIS
  17. AMLODIPINE [Concomitant]
     Active Substance: AMLODIPINE BESYLATE
     Route: 048
     Dates: start: 20180510
  18. PIPERACILLIN/TAZOBACTAM [Concomitant]
     Active Substance: PIPERACILLIN SODIUM\TAZOBACTAM SODIUM
     Route: 042
     Dates: start: 20181215, end: 20181226
  19. DEXMEDETOMIDINE. [Concomitant]
     Active Substance: DEXMEDETOMIDINE
     Route: 042
     Dates: start: 20181216, end: 20190104
  20. HYDRALAZINE [Concomitant]
     Active Substance: HYDRALAZINE HYDROCHLORIDE
     Route: 045
     Dates: start: 20181209, end: 20181217
  21. ATORVASTATIN [Concomitant]
     Active Substance: ATORVASTATIN
     Route: 048
     Dates: start: 20181201, end: 20181218
  22. PLACEBO [Suspect]
     Active Substance: UNSPECIFIED INGREDIENT
     Indication: LUPUS NEPHRITIS
     Dosage: ON DAYS 1, 15, 168, AND 182?ON 06/JUN/2017 AT 11:00, SHE RECEIVED THE MOST RECENT DOSE PRIOR TO AE.
     Route: 042
     Dates: start: 20161219
  23. METRONIDAZOLE. [Concomitant]
     Active Substance: METRONIDAZOLE
     Route: 048
     Dates: start: 20181111, end: 20181112
  24. PREDNISONE. [Concomitant]
     Active Substance: PREDNISONE
     Route: 048
     Dates: start: 20181111, end: 20181201
  25. DEXAMETHASONE. [Concomitant]
     Active Substance: DEXAMETHASONE
     Route: 042
     Dates: start: 20181109, end: 20181110
  26. CEFAZOLIN [Concomitant]
     Active Substance: CEFAZOLIN
     Route: 042
     Dates: start: 20181218, end: 20181226
  27. MIDAZOLAM [Concomitant]
     Active Substance: MIDAZOLAM HYDROCHLORIDE
     Route: 042
     Dates: start: 20181228, end: 20190104
  28. MEROPENEM. [Concomitant]
     Active Substance: MEROPENEM
     Route: 042
     Dates: start: 20190102, end: 20190104
  29. HYDROCORTISONE. [Concomitant]
     Active Substance: HYDROCORTISONE
     Route: 042
     Dates: start: 20181220, end: 20181223
  30. HYDROCORTISONE. [Concomitant]
     Active Substance: HYDROCORTISONE
     Route: 042
     Dates: start: 20181223, end: 20181224
  31. NPH INSULIN [Concomitant]
     Active Substance: INSULIN BEEF
     Route: 058
     Dates: start: 20181204, end: 20181210
  32. OMEPRAZOLE. [Concomitant]
     Active Substance: OMEPRAZOLE
     Route: 048
     Dates: start: 20180426, end: 20181130
  33. FOLIC ACID. [Concomitant]
     Active Substance: FOLIC ACID
     Route: 048
     Dates: start: 20180507
  34. CYANOCOBALAMIN. [Concomitant]
     Active Substance: CYANOCOBALAMIN
     Route: 048
     Dates: start: 20180507
  35. ENALAPRIL [Concomitant]
     Active Substance: ENALAPRIL
     Indication: LUPUS NEPHRITIS
     Route: 048
     Dates: start: 20180510, end: 20181130
  36. METRONIDAZOLE. [Concomitant]
     Active Substance: METRONIDAZOLE
     Route: 042
     Dates: start: 20181215, end: 20181222
  37. CLARITHROMYCIN. [Concomitant]
     Active Substance: CLARITHROMYCIN
     Route: 050
     Dates: start: 20181109, end: 20181111
  38. METOCLOPRAMIDE. [Concomitant]
     Active Substance: METOCLOPRAMIDE
     Route: 042
     Dates: start: 20181109, end: 20181110
  39. ENOXAPARIN [Concomitant]
     Active Substance: ENOXAPARIN
     Route: 058
     Dates: start: 20181130, end: 20181201
  40. MIRTAZAPINE. [Concomitant]
     Active Substance: MIRTAZAPINE
     Route: 050
     Dates: start: 20181221, end: 20181221
  41. PHENYTOIN. [Concomitant]
     Active Substance: PHENYTOIN
     Route: 042
     Dates: start: 20181222, end: 20190104
  42. CALCIPARINE [Concomitant]
     Active Substance: HEPARIN CALCIUM
     Route: 058
     Dates: start: 20181112, end: 20181114
  43. MEPREDNISONE [Concomitant]
     Active Substance: MEPREDNISONE
     Indication: LUPUS NEPHRITIS
     Route: 048
     Dates: start: 201609, end: 201609
  44. AMLODIPINE [Concomitant]
     Active Substance: AMLODIPINE BESYLATE
     Route: 048
     Dates: start: 20181130, end: 20181218
  45. PIPERACILLIN/TAZOBACTAM [Concomitant]
     Active Substance: PIPERACILLIN SODIUM\TAZOBACTAM SODIUM
     Route: 042
     Dates: start: 20181112, end: 20181114
  46. IMIPENEM [Concomitant]
     Active Substance: IMIPENEM
     Route: 042
     Dates: start: 20190101, end: 20190102
  47. PLACEBO [Suspect]
     Active Substance: UNSPECIFIED INGREDIENT
     Indication: LUPUS NEPHRITIS
     Dosage: ONCE DAILY FOR UP TO 3 DAYS?ON 06/JUN/2017 AT 09:45, SHE RECEIVED THE MOST RECENT DOSE PRIOR TO ONSE
     Route: 042
     Dates: start: 20161219
  48. MYCOPHENOLATE MOFETIL. [Suspect]
     Active Substance: MYCOPHENOLATE MOFETIL
     Indication: LUPUS NEPHRITIS
     Dosage: AT A STARTING DOSE OF 1500 MG/DAY (OR EQUIVALENT) ADMINISTERED ORALLY IN 2 OR 3 DIVIDED DOSES: AS PE
     Route: 048
     Dates: start: 20161121
  49. MYCOPHENOLATE MOFETIL. [Suspect]
     Active Substance: MYCOPHENOLATE MOFETIL
     Indication: LUPUS NEPHRITIS
  50. MEPREDNISONE [Concomitant]
     Active Substance: MEPREDNISONE
     Route: 048
     Dates: start: 20180326
  51. MEPREDNISONE [Concomitant]
     Active Substance: MEPREDNISONE
     Route: 050
     Dates: start: 20181206, end: 20181219
  52. NPH INSULIN [Concomitant]
     Active Substance: INSULIN BEEF
     Route: 058
     Dates: start: 20181203, end: 20181204
  53. NPH INSULIN [Concomitant]
     Active Substance: INSULIN BEEF
     Route: 058
     Dates: start: 20181211, end: 20181217
  54. OMEPRAZOLE. [Concomitant]
     Active Substance: OMEPRAZOLE
     Route: 045
     Dates: start: 20181211, end: 20190104
  55. AMLODIPINE [Concomitant]
     Active Substance: AMLODIPINE BESYLATE
     Route: 048
     Dates: start: 20181219, end: 20181219
  56. AMPICILLIN/SULBACTAM [Concomitant]
     Active Substance: AMPICILLIN SODIUM\SULBACTAM SODIUM
     Route: 042
     Dates: start: 20181109
  57. HYDRALAZINE [Concomitant]
     Active Substance: HYDRALAZINE HYDROCHLORIDE
     Route: 045
     Dates: start: 20181208, end: 20181209
  58. HYDROXYCHLOROQUINE [Concomitant]
     Active Substance: HYDROXYCHLOROQUINE
     Route: 048
     Dates: start: 20180411, end: 20181130
  59. OSELTAMIVIR [Concomitant]
     Active Substance: OSELTAMIVIR
     Route: 048
     Dates: start: 20181109, end: 20181111
  60. CEFALEXIN [Concomitant]
     Active Substance: CEPHALEXIN
     Route: 048
     Dates: start: 20181115
  61. LEVETIRACETAM. [Concomitant]
     Active Substance: LEVETIRACETAM
     Route: 042
     Dates: start: 20181211, end: 20190104
  62. BISOPROLOL [Concomitant]
     Active Substance: BISOPROLOL
     Route: 050
     Dates: start: 20181208, end: 20181226
  63. BISOPROLOL [Concomitant]
     Active Substance: BISOPROLOL
     Route: 050
     Dates: start: 20181227, end: 20190104
  64. MEROPENEM. [Concomitant]
     Active Substance: MEROPENEM
     Route: 042
     Dates: start: 20181218, end: 20181219
  65. FUROSEMIDE. [Concomitant]
     Active Substance: FUROSEMIDE
     Route: 042
     Dates: start: 20181209, end: 20190104

REACTIONS (4)
  - Seizure [Recovered/Resolved]
  - Hemiparesis [Unknown]
  - Progressive multifocal leukoencephalopathy [Fatal]
  - Sepsis [Recovered/Resolved]

NARRATIVE: CASE EVENT DATE: 20181125
